FAERS Safety Report 9364081 (Version 1)
Quarter: 2013Q2

REPORT INFORMATION
  Report Type: Spontaneous
  Country: AU (occurrence: AU)
  Receive Date: 20130624
  Receipt Date: 20130624
  Transmission Date: 20140414
  Serious: Yes (Hospitalization)
  Sender: FDA-Public Use
  Company Number: AU-SANOFI-AVENTIS-2013SA061959

PATIENT
  Age: 29 Year
  Sex: Female
  Weight: 73 kg

DRUGS (6)
  1. STILNOX CR [Suspect]
     Indication: SLEEP DISORDER
     Route: 065
     Dates: start: 20121221, end: 20121221
  2. LOVAN [Suspect]
     Indication: DEPRESSION
     Route: 065
  3. FOLIC ACID [Concomitant]
  4. SWISSE WOMENS ULTIVITE MULTIVITAMIN, MINERAL [Concomitant]
     Route: 048
  5. FOLIC ACID/VITAMIN B12 NOS [Concomitant]
  6. PYRIDOXINE HYDROCHLORIDE/VITAMIN B12 NOS [Concomitant]

REACTIONS (8)
  - Road traffic accident [Unknown]
  - Medication error [Unknown]
  - Blood alcohol increased [Unknown]
  - Somnambulism [Unknown]
  - Contusion [Unknown]
  - Laceration [None]
  - Tooth loss [None]
  - Head injury [None]
